FAERS Safety Report 4967284-2 (Version None)
Quarter: 2006Q2

REPORT INFORMATION
  Report Type: 
  Country: None (occurrence: None)
  Receive Date: 20060403
  Receipt Date: 20060323
  Transmission Date: 20061013
  Serious: Yes (Hospitalization, Other)
  Sender: FDA-Public Use
  Company Number: 223400

PATIENT
  Age: 46 Year
  Sex: Female
  Weight: 180 kg

DRUGS (25)
  1. HERCEPTIN [Suspect]
     Indication: BREAST CANCER
     Dosage: 315 MG, SINGLE, INTRAVENOUS; SEE IMAGE
     Route: 042
     Dates: start: 20051001, end: 20060117
  2. HERCEPTIN [Suspect]
     Indication: BREAST CANCER
     Dosage: 315 MG, SINGLE, INTRAVENOUS; SEE IMAGE
     Route: 042
     Dates: start: 20051003
  3. TAXOTERE [Concomitant]
  4. ZITHROMAX [Concomitant]
  5. KLOR-CON [Concomitant]
  6. PROCRIT [Concomitant]
  7. SWISH N SWALLOW (BENADRYL, NYSTATIN, VISCOUS L (DIPHENHYDRAMINE HYDROC [Concomitant]
  8. MAALOX (ALUMINUM HYDROXIDE, MAGNESIUM HYDROXIDE) [Concomitant]
  9. NASAREL (FLUNISOLIDE) [Concomitant]
  10. PROCTOFOAM-HC (HYDROCORTISONE ACETATE, PRAMOXINE HYDROCHLORIDE) [Concomitant]
  11. SUCRALFATE [Concomitant]
  12. CYCLOBENZAPRINE HYDROCHLORIDE [Concomitant]
  13. HYDROCORTISONE ACETATE (HYDROCORTISONE ACETATE) [Concomitant]
  14. HYDROCODONE AND ACETAMINOPHEN (ACETAMINOPHEN, HYDROCODONE BITARTRATE) [Concomitant]
  15. LORAZEPAM [Concomitant]
  16. PROCHLORPERAZINE MALEATE (PROCHLORPERAZINE MALEATE) [Concomitant]
  17. PROCHLORPERAZINE MALEATE [Concomitant]
  18. OMEPRAZOLE [Concomitant]
  19. VICODIN [Concomitant]
  20. LASIX [Concomitant]
  21. NTG (NITROGLYCERIN) [Concomitant]
  22. POTASSIUM CHLORIDE [Concomitant]
  23. LODINE [Concomitant]
  24. AZITHROMYCIN [Concomitant]
  25. MAGNESIUM OXIDE (MAGNESIUM OXIDE) [Concomitant]

REACTIONS (22)
  - ADJUSTMENT DISORDER [None]
  - ANXIETY [None]
  - ATELECTASIS [None]
  - BLOOD POTASSIUM DECREASED [None]
  - CARDIOTOXICITY [None]
  - CHEST DISCOMFORT [None]
  - DRUG TOXICITY [None]
  - EXERCISE TOLERANCE DECREASED [None]
  - FACE OEDEMA [None]
  - HAEMATOCRIT DECREASED [None]
  - HAEMOGLOBIN DECREASED [None]
  - LUNG NEOPLASM [None]
  - MYOCARDIAL INFARCTION [None]
  - NASOPHARYNGITIS [None]
  - PALPITATIONS [None]
  - PLEURAL EFFUSION [None]
  - PNEUMONIA [None]
  - SINUS TACHYCARDIA [None]
  - TACHYCARDIA [None]
  - THERAPY NON-RESPONDER [None]
  - UPPER RESPIRATORY TRACT INFECTION [None]
  - WEIGHT INCREASED [None]
